FAERS Safety Report 16653180 (Version 1)
Quarter: 2019Q3

REPORT INFORMATION
  Report Type: Other
  Country: FR (occurrence: FR)
  Receive Date: 20190731
  Receipt Date: 20190731
  Transmission Date: 20191004
  Serious: Yes (Hospitalization)
  Sender: FDA-Public Use
  Company Number: FR-VITRUVIAS THERAPEUTICS-2071642

PATIENT
  Age: 27 Year
  Sex: Female

DRUGS (2)
  1. LIDOCAINE AND PRILOCAINE [Suspect]
     Active Substance: LIDOCAINE\PRILOCAINE
  2. LIDOCAINE. [Suspect]
     Active Substance: LIDOCAINE

REACTIONS (2)
  - Methaemoglobinaemia [None]
  - Cyanosis [None]
